FAERS Safety Report 8630773 (Version 2)
Quarter: 2016Q2

REPORT INFORMATION
  Report Type: Spontaneous
  Country: BR (occurrence: BR)
  Receive Date: 20120622
  Receipt Date: 20160517
  Transmission Date: 20160815
  Serious: Yes (Hospitalization, Other)
  Sender: FDA-Public Use
  Company Number: BR-JNJFOC-20120607598

PATIENT
  Age: 44 Year
  Sex: Female

DRUGS (6)
  1. AZATHIOPRINE. [Concomitant]
     Active Substance: AZATHIOPRINE
     Route: 065
  2. REMICADE [Suspect]
     Active Substance: INFLIXIMAB
     Indication: CROHN^S DISEASE
     Route: 042
     Dates: start: 2010
  3. REMICADE [Suspect]
     Active Substance: INFLIXIMAB
     Indication: CROHN^S DISEASE
     Route: 042
     Dates: start: 2009
  4. REMICADE [Suspect]
     Active Substance: INFLIXIMAB
     Indication: CROHN^S DISEASE
     Dosage: INFUSION DURATIN 50 TO 60 MINUTES, APPROXIMATELY RECEIVED 6 INFUSIONS
     Route: 042
  5. LEVOXIN [Suspect]
     Active Substance: LEVOFLOXACIN
     Indication: SINUSITIS
     Route: 065
  6. APRAZ [Concomitant]
     Route: 065

REACTIONS (12)
  - Intestinal obstruction [Unknown]
  - Weight decreased [Not Recovered/Not Resolved]
  - Gliosis [Unknown]
  - Asthenia [Not Recovered/Not Resolved]
  - Supraventricular tachycardia [Unknown]
  - Eye pain [Unknown]
  - Off label use [Unknown]
  - Decreased appetite [Not Recovered/Not Resolved]
  - Diarrhoea [Not Recovered/Not Resolved]
  - Psychotic disorder [Unknown]
  - Sinusitis [Unknown]
  - Inappropriate schedule of drug administration [Unknown]

NARRATIVE: CASE EVENT DATE: 2011
